FAERS Safety Report 8139547-3 (Version None)
Quarter: 2012Q1

REPORT INFORMATION
  Report Type: 
  Country: None (occurrence: None)
  Receive Date: 20120215
  Receipt Date: 20120210
  Transmission Date: 20120608
  Serious: Yes (Disabling, Other)
  Sender: FDA-Public Use
  Company Number: US-PFIZER INC-2011167270

PATIENT
  Sex: Male

DRUGS (1)
  1. CHANTIX [Suspect]
     Indication: SMOKING CESSATION THERAPY
     Dosage: STARTER PACK ^ADDITIONAL ONE MONTH^
     Dates: start: 20070215, end: 20070415

REACTIONS (14)
  - ANXIETY [None]
  - ANGER [None]
  - BIPOLAR DISORDER [None]
  - SOCIAL AVOIDANT BEHAVIOUR [None]
  - SUICIDE ATTEMPT [None]
  - SLEEP DISORDER [None]
  - ABNORMAL DREAMS [None]
  - ATTENTION DEFICIT/HYPERACTIVITY DISORDER [None]
  - LOSS OF CONSCIOUSNESS [None]
  - PANIC ATTACK [None]
  - AGGRESSION [None]
  - MANIA [None]
  - TEMPORAL LOBE EPILEPSY [None]
  - DEPRESSION [None]
